FAERS Safety Report 5193880-6 (Version None)
Quarter: 2006Q4

REPORT INFORMATION
  Report Type: 
  Country: None (occurrence: None)
  Receive Date: 20061222
  Receipt Date: 20061219
  Transmission Date: 20070319
  Serious: Yes (Death, Hospitalization)
  Sender: FDA-Public Use
  Company Number: AZAUS200600412

PATIENT
  Age: 74 Year
  Sex: Male

DRUGS (7)
  1. VIDAZA [Suspect]
     Indication: MYELODYSPLASTIC SYNDROME
     Dosage: (85 MG, DAILY X 10 DAYS), SUBCUTANEOUS
     Route: 058
     Dates: start: 20060918, end: 20060929
  2. TOPROL-XL [Concomitant]
  3. FOLTX (TRIOBE) [Concomitant]
  4. ZOLOFT [Concomitant]
  5. CARDURA [Concomitant]
  6. ZYRTEC [Concomitant]
  7. ARANESP [Concomitant]

REACTIONS (5)
  - HYPOTENSION [None]
  - HYPOXIA [None]
  - INTERSTITIAL LUNG DISEASE [None]
  - SUPRAVENTRICULAR TACHYCARDIA [None]
  - THERAPY NON-RESPONDER [None]
